FAERS Safety Report 24724074 (Version 2)
Quarter: 2024Q4

REPORT INFORMATION
  Report Type: Report from Study
  Country: NL (occurrence: NL)
  Receive Date: 20241211
  Receipt Date: 20241213
  Transmission Date: 20250115
  Serious: Yes (Death)
  Sender: ABBVIE
  Company Number: NL-ABBVIE-5914702

PATIENT
  Age: 83 Year
  Sex: Male

DRUGS (11)
  1. CARBIDOPA\LEVODOPA [Suspect]
     Active Substance: CARBIDOPA\LEVODOPA
     Indication: Parkinson^s disease
     Dosage: MD:11.0ML; CD:3.8ML/H; ED:2.0ML, REMAINS AT 16 HOURS
     Route: 050
     Dates: start: 20240312, end: 20240822
  2. CARBIDOPA\LEVODOPA [Suspect]
     Active Substance: CARBIDOPA\LEVODOPA
     Route: 050
     Dates: start: 20201210
  3. CARBIDOPA\LEVODOPA [Suspect]
     Active Substance: CARBIDOPA\LEVODOPA
     Dosage: PUMP TYPE- DAY PUMP: MORNING DOSAGE- 11.0 ML, ADDITIONAL TUBE FILING - 1 ML, CONTINUOUS DOSAGE - ...
     Route: 050
     Dates: start: 20240822, end: 20241024
  4. CARBIDOPA\LEVODOPA [Suspect]
     Active Substance: CARBIDOPA\LEVODOPA
     Dosage: MD: 11.0ML; CD: 4.0ML/H; ED: 2.0ML, THERAPY DURATION REMAINS AT 16 HOURS,
     Route: 050
     Dates: start: 20241024, end: 20241129
  5. ENTACAPONE [Concomitant]
     Active Substance: ENTACAPONE
     Indication: Parkinson^s disease
     Dosage: TIME INTERVAL: 0.16666667 DAYS
     Route: 048
     Dates: start: 20151201, end: 20201215
  6. CARBIDOPA\LEVODOPA [Concomitant]
     Active Substance: CARBIDOPA\LEVODOPA
     Indication: Parkinson^s disease
     Dosage: 5 DD 1
     Route: 048
     Dates: start: 20151201, end: 20201215
  7. CARBIDOPA\LEVODOPA [Concomitant]
     Active Substance: CARBIDOPA\LEVODOPA
     Indication: Parkinson^s disease
     Dosage: CR, 1 DD 1
     Route: 048
     Dates: start: 20151201
  8. BENSERAZIDE HYDROCHLORIDE\LEVODOPA [Concomitant]
     Active Substance: BENSERAZIDE HYDROCHLORIDE\LEVODOPA
     Indication: Parkinson^s disease
     Dates: start: 202012, end: 20201228
  9. BENSERAZIDE HYDROCHLORIDE\LEVODOPA [Concomitant]
     Active Substance: BENSERAZIDE HYDROCHLORIDE\LEVODOPA
     Indication: Parkinson^s disease
     Dosage: TIME INTERVAL: AS NECESSARY: 125 MG, WHEN NEEDED
     Route: 048
     Dates: start: 20151201, end: 20201215
  10. BENSERAZIDE HYDROCHLORIDE\LEVODOPA [Concomitant]
     Active Substance: BENSERAZIDE HYDROCHLORIDE\LEVODOPA
     Indication: Parkinson^s disease
  11. SELEGILINE [Concomitant]
     Active Substance: SELEGILINE
     Indication: Parkinson^s disease
     Dosage: 1 DD 1
     Route: 048
     Dates: start: 20151201, end: 20201215

REACTIONS (23)
  - Myocardial infarction [Fatal]
  - Bradykinesia [Not Recovered/Not Resolved]
  - Reduced facial expression [Not Recovered/Not Resolved]
  - Stoma site erythema [Not Recovered/Not Resolved]
  - Gait disturbance [Not Recovered/Not Resolved]
  - Stoma site discharge [Not Recovered/Not Resolved]
  - Orthostatic hypotension [Not Recovered/Not Resolved]
  - Apathy [Not Recovered/Not Resolved]
  - Dyskinesia [Not Recovered/Not Resolved]
  - On and off phenomenon [Not Recovered/Not Resolved]
  - Inappropriate schedule of product administration [Not Recovered/Not Resolved]
  - Fall [Not Recovered/Not Resolved]
  - Amnesia [Not Recovered/Not Resolved]
  - Muscle rigidity [Not Recovered/Not Resolved]
  - Fatigue [Not Recovered/Not Resolved]
  - Diarrhoea [Unknown]
  - Faeces hard [Unknown]
  - Unevaluable event [Not Recovered/Not Resolved]
  - Hypokinesia [Not Recovered/Not Resolved]
  - Chorea [Not Recovered/Not Resolved]
  - Strabismus [Unknown]
  - Mobility decreased [Not Recovered/Not Resolved]
  - Disinhibition [Not Recovered/Not Resolved]

NARRATIVE: CASE EVENT DATE: 20240101
